FAERS Safety Report 6585103-8 (Version None)
Quarter: 2010Q1

REPORT INFORMATION
  Report Type: 
  Country: None (occurrence: None)
  Receive Date: 20100217
  Receipt Date: 20100208
  Transmission Date: 20100710
  Serious: Yes (Life-Threatening, Other)
  Sender: FDA-Public Use
  Company Number: GR-PFIZER INC-2010015930

PATIENT
  Age: 65 Year
  Sex: Female

DRUGS (2)
  1. BEGALIN-P [Suspect]
     Indication: TOOTH ABSCESS
     Dosage: 3 G, UNK
     Route: 042
     Dates: start: 20100101, end: 20100101
  2. AMOXIL [Concomitant]

REACTIONS (1)
  - CARDIAC ARREST [None]
